FAERS Safety Report 4450756-7 (Version None)
Quarter: 2004Q3

REPORT INFORMATION
  Report Type: 
  Country: None (occurrence: None)
  Receive Date: 20040913
  Receipt Date: 20040528
  Transmission Date: 20050211
  Serious: No
  Sender: FDA-Public Use
  Company Number: 2004-BP-04302BP(0)

PATIENT
  Age: 70 Year
  Sex: Female

DRUGS (1)
  1. SPIRIVA [Suspect]
     Indication: CHRONIC OBSTRUCTIVE AIRWAYS DISEASE
     Dosage: 18 MCG (18 MCG), IH
     Dates: start: 20040525

REACTIONS (3)
  - ABNORMAL SENSATION IN EYE [None]
  - EYE DISORDER [None]
  - KERATOCONJUNCTIVITIS SICCA [None]
